FAERS Safety Report 25483952 (Version 1)
Quarter: 2025Q2

REPORT INFORMATION
  Report Type: Spontaneous
  Country: CN (occurrence: CN)
  Receive Date: 20250626
  Receipt Date: 20250626
  Transmission Date: 20250716
  Serious: Yes (Life-Threatening, Other)
  Sender: PFIZER
  Company Number: CN-PFIZER INC-PV202500075084

PATIENT
  Age: 65 Year
  Sex: Female

DRUGS (5)
  1. METHYLPREDNISOLONE SODIUM SUCCINATE [Suspect]
     Active Substance: METHYLPREDNISOLONE SODIUM SUCCINATE
     Indication: Toxic epidermal necrolysis
     Dosage: 80 MG, DAILY
     Route: 042
  2. METHYLPREDNISOLONE SODIUM SUCCINATE [Suspect]
     Active Substance: METHYLPREDNISOLONE SODIUM SUCCINATE
     Dosage: 120 MG, DAILY
     Route: 042
  3. METHYLPREDNISOLONE SODIUM SUCCINATE [Suspect]
     Active Substance: METHYLPREDNISOLONE SODIUM SUCCINATE
     Dosage: 20 MG, DAILY
     Route: 042
  4. ETANERCEPT [Suspect]
     Active Substance: ETANERCEPT
     Indication: Toxic epidermal necrolysis
     Dosage: 25 MG, DAILY (INITIAL DOSE DOUBLED, ADMINISTERED ONCE EVERY 3 DAYS FOR A TOTAL OF 3 DOSES)
  5. HUMAN IMMUNOGLOBULIN G [Suspect]
     Active Substance: HUMAN IMMUNOGLOBULIN G
     Indication: Toxic epidermal necrolysis
     Dosage: 2000 MG, DAILY (2G/DAY)
     Route: 042

REACTIONS (2)
  - Drug ineffective for unapproved indication [Recovering/Resolving]
  - Off label use [Unknown]
